FAERS Safety Report 19353363 (Version 3)
Quarter: 2023Q2

REPORT INFORMATION
  Report Type: Report from Study
  Country: IL (occurrence: IL)
  Receive Date: 20210601
  Receipt Date: 20230405
  Transmission Date: 20230721
  Serious: Yes (Death, Other)
  Sender: FDA-Public Use
  Company Number: IL-ABBVIE-21K-082-3928117-00

PATIENT
  Age: 83 Year
  Sex: Female
  Weight: 50 kg

DRUGS (36)
  1. VENCLEXTA [Suspect]
     Active Substance: VENETOCLAX
     Indication: Acute myeloid leukaemia
     Dosage: INTERRUPTION
     Route: 048
     Dates: start: 20191114, end: 20191209
  2. VENCLEXTA [Suspect]
     Active Substance: VENETOCLAX
     Indication: Acute myeloid leukaemia
     Dosage: INTERRUPTION
     Route: 048
     Dates: start: 20200126, end: 20200321
  3. VENCLEXTA [Suspect]
     Active Substance: VENETOCLAX
     Indication: Acute myeloid leukaemia
     Dosage: INTERRUPTION
     Route: 048
     Dates: start: 20200907, end: 20200929
  4. VENCLEXTA [Suspect]
     Active Substance: VENETOCLAX
     Indication: Acute myeloid leukaemia
     Dosage: INTERRUPTION
     Route: 048
     Dates: start: 20200412, end: 20200509
  5. VENCLEXTA [Suspect]
     Active Substance: VENETOCLAX
     Indication: Acute myeloid leukaemia
     Dosage: INTERRUPTION
     Route: 048
     Dates: start: 20200719, end: 20200815
  6. VENCLEXTA [Suspect]
     Active Substance: VENETOCLAX
     Indication: Acute myeloid leukaemia
     Dosage: INTERRUPTION
     Route: 048
     Dates: start: 20200531, end: 20200627
  7. VENCLEXTA [Suspect]
     Active Substance: VENETOCLAX
     Indication: Acute myeloid leukaemia
     Dosage: RAMP UP
     Route: 048
     Dates: start: 20201101, end: 20201121
  8. VENCLEXTA [Suspect]
     Active Substance: VENETOCLAX
     Indication: Acute myeloid leukaemia
     Dosage: RAMP UP
     Route: 048
     Dates: start: 20191113, end: 20191113
  9. VENCLEXTA [Suspect]
     Active Substance: VENETOCLAX
     Indication: Acute myeloid leukaemia
     Dosage: INTERRUPTION?RAMP UP
     Route: 048
     Dates: start: 20191112, end: 20191112
  10. VENCLEXTA [Suspect]
     Active Substance: VENETOCLAX
     Indication: Acute myeloid leukaemia
     Route: 048
     Dates: end: 20201201
  11. AZACITIDINE [Suspect]
     Active Substance: AZACITIDINE
     Indication: Acute myeloid leukaemia
     Dosage: QD, CYCLE 2
     Route: 058
     Dates: start: 20191112, end: 20191118
  12. AZACITIDINE [Suspect]
     Active Substance: AZACITIDINE
     Indication: Acute myeloid leukaemia
     Dosage: QD, CYCLE 1
     Route: 058
     Dates: start: 20191215, end: 20191219
  13. AZACITIDINE [Suspect]
     Active Substance: AZACITIDINE
     Indication: Acute myeloid leukaemia
     Dosage: QD, CYCLE 3
     Route: 058
     Dates: start: 20200126, end: 20200130
  14. AZACITIDINE [Suspect]
     Active Substance: AZACITIDINE
     Indication: Acute myeloid leukaemia
     Dosage: QD, CYCLE 7
     Route: 058
     Dates: start: 20200223, end: 20200226
  15. AZACITIDINE [Suspect]
     Active Substance: AZACITIDINE
     Indication: Acute myeloid leukaemia
     Dosage: QD, CYCLE 4
     Route: 058
     Dates: start: 20200412, end: 20200414
  16. AZACITIDINE [Suspect]
     Active Substance: AZACITIDINE
     Indication: Acute myeloid leukaemia
     Dosage: QD, CYCLE 8
     Route: 058
     Dates: start: 20200531, end: 20200604
  17. AZACITIDINE [Suspect]
     Active Substance: AZACITIDINE
     Indication: Acute myeloid leukaemia
     Dosage: QD, CYCLE 6
     Route: 058
     Dates: start: 20200719, end: 20200723
  18. AZACITIDINE [Suspect]
     Active Substance: AZACITIDINE
     Indication: Acute myeloid leukaemia
     Dosage: QD, CYCLE 8
     Route: 058
     Dates: start: 20200907, end: 20200910
  19. AZACITIDINE [Suspect]
     Active Substance: AZACITIDINE
     Indication: Acute myeloid leukaemia
     Dosage: CYCLE 9
     Route: 058
     Dates: start: 20201101, end: 20201105
  20. AZACITIDINE [Suspect]
     Active Substance: AZACITIDINE
     Indication: Acute myeloid leukaemia
     Dosage: QD, CYCLE 5
     Dates: start: 20200416, end: 20200416
  21. AZACITIDINE [Suspect]
     Active Substance: AZACITIDINE
     Indication: Acute myeloid leukaemia
     Dosage: CYCLE 3
     Route: 058
     Dates: start: 20200301, end: 20200301
  22. AZACITIDINE [Suspect]
     Active Substance: AZACITIDINE
     Indication: Acute myeloid leukaemia
     Dosage: CYCLE 6
     Route: 058
     Dates: start: 20191222, end: 20191223
  23. AZACITIDINE [Suspect]
     Active Substance: AZACITIDINE
     Indication: Acute myeloid leukaemia
     Dosage: CYCLE 5
     Route: 058
     Dates: start: 20200607, end: 20200608
  24. AZACITIDINE [Suspect]
     Active Substance: AZACITIDINE
     Indication: Acute myeloid leukaemia
     Dosage: CYCLE 4
     Route: 058
     Dates: start: 20200303, end: 20200304
  25. AZACITIDINE [Suspect]
     Active Substance: AZACITIDINE
     Indication: Acute myeloid leukaemia
     Dosage: CYCLE 9
     Route: 058
     Dates: start: 20200202, end: 20200203
  26. AZACITIDINE [Suspect]
     Active Substance: AZACITIDINE
     Indication: Acute myeloid leukaemia
     Dosage: CYCLE 5
     Dates: start: 20200913, end: 20200915
  27. AZACITIDINE [Suspect]
     Active Substance: AZACITIDINE
     Indication: Acute myeloid leukaemia
     Dosage: QD, CYCLE 4
     Route: 058
     Dates: start: 20200726, end: 20200727
  28. AZACITIDINE [Suspect]
     Active Substance: AZACITIDINE
     Indication: Acute myeloid leukaemia
     Dosage: QD, CYCLE 2
     Route: 058
     Dates: start: 20200419, end: 20200421
  29. REOLIN [Concomitant]
     Indication: Productive cough
     Dates: start: 20100928
  30. REOLIN [Concomitant]
     Indication: Productive cough
     Dates: start: 20100928
  31. SIMVAXON [Concomitant]
     Indication: Hyperlipidaemia
     Dates: start: 20081015
  32. SIMVASTATIN [Concomitant]
     Active Substance: SIMVASTATIN
     Indication: Hyperlipidaemia
     Dates: start: 20081204
  33. FERRIPEL [Concomitant]
     Indication: Anaemia
     Dates: start: 20120625
  34. RAMIPRIL [Concomitant]
     Active Substance: RAMIPRIL
     Indication: Myocardial ischaemia
     Dates: start: 20081204
  35. NYSTATIN [Concomitant]
     Active Substance: NYSTATIN
     Indication: Prophylaxis
     Dates: start: 20191124
  36. ALLOPURINOL [Concomitant]
     Active Substance: ALLOPURINOL
     Indication: Prophylaxis
     Dates: start: 20191112

REACTIONS (2)
  - Haemorrhage intracranial [Fatal]
  - Haematotoxicity [Recovered/Resolved]

NARRATIVE: CASE EVENT DATE: 20201121
